FAERS Safety Report 5373581-1 (Version None)
Quarter: 2007Q2

REPORT INFORMATION
  Report Type: 
  Country: None (occurrence: None)
  Receive Date: 20070628
  Receipt Date: 20070405
  Transmission Date: 20071010
  Serious: No
  Sender: FDA-Public Use
  Company Number: US-BAUSCH-2007BL001144

PATIENT
  Age: 91 Year
  Sex: Female
  Weight: 40 kg

DRUGS (9)
  1. ZYLET [Suspect]
     Indication: CHRONIC OBSTRUCTIVE PULMONARY DISEASE
     Route: 047
     Dates: start: 20070402, end: 20070408
  2. ZYLET [Suspect]
     Indication: EYE INFECTION
     Route: 047
     Dates: start: 20070402, end: 20070408
  3. TRAVATAN [Concomitant]
     Indication: GLAUCOMA
  4. COUMADIN [Concomitant]
     Indication: CARDIAC DISORDER
  5. DIGOXIN [Concomitant]
     Indication: CARDIAC DISORDER
  6. OMEPRAZOLE [Concomitant]
     Indication: GASTRIC ULCER
  7. ADVAIR DISKUS 100/50 [Concomitant]
     Indication: CHRONIC OBSTRUCTIVE PULMONARY DISEASE
  8. SPIRIVA [Concomitant]
     Indication: CHRONIC OBSTRUCTIVE PULMONARY DISEASE
  9. ALBUTEROL [Concomitant]
     Indication: CHRONIC OBSTRUCTIVE PULMONARY DISEASE

REACTIONS (3)
  - EYE DISCHARGE [None]
  - INTRAOCULAR PRESSURE INCREASED [None]
  - OCULAR HYPERAEMIA [None]
